FAERS Safety Report 11422779 (Version 1)
Quarter: 2015Q3

REPORT INFORMATION
  Report Type: Report from Study
  Country: US (occurrence: US)
  Receive Date: 20150827
  Receipt Date: 20150827
  Transmission Date: 20151125
  Serious: No
  Sender: FDA-Public Use
  Company Number: US-AMGEN-USASP2015085386

PATIENT
  Age: 69 Year
  Sex: Female

DRUGS (6)
  1. CALCIUM [Concomitant]
     Active Substance: CALCIUM
     Dosage: 12000 MG, UNK
  2. ACETYLSALICYLIC ACID [Concomitant]
     Active Substance: ASPIRIN
     Dosage: UNK
  3. FOLIC ACID. [Concomitant]
     Active Substance: FOLIC ACID
     Dosage: 1 MG, UNK
  4. METHOTREXATE [Concomitant]
     Active Substance: METHOTREXATE
     Dosage: 2 DF, ON SATURDAY
  5. ENBREL [Suspect]
     Active Substance: ETANERCEPT
     Indication: RHEUMATOID ARTHRITIS
     Dosage: 50 MG, QWK
     Route: 065
     Dates: end: 201506
  6. AFEDITAB [Concomitant]
     Indication: HYPERTENSION
     Dosage: 30 MG, UNK

REACTIONS (7)
  - Nervousness [Recovered/Resolved]
  - Breath odour [Recovered/Resolved]
  - Inappropriate schedule of drug administration [Recovered/Resolved]
  - Abdominal discomfort [Recovered/Resolved]
  - Mycobacterium tuberculosis complex test positive [Recovered/Resolved]
  - Product taste abnormal [Recovered/Resolved]
  - Personality change [Recovered/Resolved]
